FAERS Safety Report 19769354 (Version 1)
Quarter: 2021Q3

REPORT INFORMATION
  Report Type: Spontaneous
  Country: US (occurrence: US)
  Receive Date: 20210831
  Receipt Date: 20210831
  Transmission Date: 20211014
  Serious: No
  Sender: FDA-Public Use
  Company Number: None

PATIENT
  Age: 16 Year
  Sex: Female
  Weight: 84.6 kg

DRUGS (1)
  1. ZAFEMY [Suspect]
     Active Substance: ETHINYL ESTRADIOL\NORELGESTROMIN
     Indication: DYSMENORRHOEA
     Route: 062
     Dates: start: 20210713, end: 20210822

REACTIONS (3)
  - Application site discolouration [None]
  - Application site pruritus [None]
  - Application site burn [None]

NARRATIVE: CASE EVENT DATE: 20210822
